FAERS Safety Report 8968194 (Version 1)
Quarter: 2012Q4

REPORT INFORMATION
  Report Type: 
  Country: US (occurrence: US)
  Receive Date: 20121218
  Receipt Date: 20121218
  Transmission Date: 20130627
  Serious: No
  Sender: FDA-Public Use
  Company Number: US-JNJFOC-20121205934

PATIENT
  Age: 80 Year
  Sex: Male
  Weight: 63.5 kg

DRUGS (1)
  1. SANDOZ FENTANYL TRANSDERMAL SYSTEM [Suspect]
     Indication: PAIN
     Route: 062
     Dates: start: 20121204, end: 20121205

REACTIONS (7)
  - Hyperhidrosis [Not Recovered/Not Resolved]
  - Insomnia [Recovered/Resolved]
  - Drug dose omission [Not Recovered/Not Resolved]
  - Skin odour abnormal [Recovering/Resolving]
  - Nausea [Recovering/Resolving]
  - Incorrect drug administration duration [Not Recovered/Not Resolved]
  - Confusional state [Not Recovered/Not Resolved]
